FAERS Safety Report 7423884-1 (Version None)
Quarter: 2011Q2

REPORT INFORMATION
  Report Type: 
  Country: None (occurrence: None)
  Receive Date: 20110419
  Receipt Date: 20110415
  Transmission Date: 20111010
  Serious: Yes (Congenital Anomaly)
  Sender: FDA-Public Use
  Company Number: A0687248A

PATIENT
  Sex: Male
  Weight: 3.1 kg

DRUGS (6)
  1. PAXIL [Suspect]
     Indication: DEPRESSION
     Dosage: 20MG PER DAY
     Route: 064
     Dates: start: 19940101, end: 19950601
  2. PRENATAL VITAMINS [Concomitant]
     Indication: MIGRAINE
     Route: 064
     Dates: start: 19930101, end: 19950101
  3. ACETAMINOPHEN [Concomitant]
     Indication: MIGRAINE
     Route: 064
     Dates: start: 19930101
  4. BRETHINE [Concomitant]
     Route: 064
     Dates: start: 19950101, end: 19960101
  5. BC POWDER [Concomitant]
     Indication: MIGRAINE
     Route: 064
     Dates: start: 19930101
  6. IMITREX [Concomitant]
     Indication: MIGRAINE
     Route: 064
     Dates: start: 19940101

REACTIONS (4)
  - HEART DISEASE CONGENITAL [None]
  - VENTRICULAR SEPTAL DEFECT [None]
  - CARDIAC MURMUR [None]
  - DRUG EXPOSURE DURING PREGNANCY [None]
